FAERS Safety Report 16848825 (Version 1)
Quarter: 2019Q3

REPORT INFORMATION
  Report Type: Spontaneous
  Country: ES (occurrence: ES)
  Receive Date: 20190925
  Receipt Date: 20190925
  Transmission Date: 20191005
  Serious: Yes (Death, Hospitalization, Other)
  Sender: FDA-Public Use
  Company Number: ES-AUROBINDO-AUR-APL-2019-061186

PATIENT
  Age: 67 Year
  Sex: Male
  Weight: 66 kg

DRUGS (2)
  1. CAPECITABINE. [Suspect]
     Active Substance: CAPECITABINE
     Indication: ADENOCARCINOMA OF COLON
     Dosage: UNK
     Route: 065
  2. OXALIPLATIN. [Suspect]
     Active Substance: OXALIPLATIN
     Indication: ADENOCARCINOMA OF COLON
     Dosage: UNK
     Route: 065

REACTIONS (26)
  - Gastric dilatation [Unknown]
  - Oesophageal haemorrhage [Unknown]
  - Renal failure [Unknown]
  - Haematemesis [Unknown]
  - Toxicity to various agents [Unknown]
  - Vomiting [Unknown]
  - Condition aggravated [Unknown]
  - Somnolence [Unknown]
  - Mucosal disorder [Unknown]
  - Asthenia [Unknown]
  - Oesophagitis [Unknown]
  - Dehydration [Unknown]
  - Haemorrhage [Unknown]
  - Anaemia [Unknown]
  - Multiple organ dysfunction syndrome [Fatal]
  - Rectal haemorrhage [Unknown]
  - Tachycardia [Unknown]
  - Tachypnoea [Unknown]
  - Thrombosis [Unknown]
  - Enteritis [Unknown]
  - Abdominal distension [Unknown]
  - Intestinal dilatation [Unknown]
  - Gastrointestinal haemorrhage [Unknown]
  - Hypovolaemic shock [Fatal]
  - Diarrhoea [Unknown]
  - Hyperaemia [Unknown]
